FAERS Safety Report 6000916-9 (Version None)
Quarter: 2008Q4

REPORT INFORMATION
  Report Type: 
  Country: None (occurrence: None)
  Receive Date: 20081215
  Receipt Date: 20081209
  Transmission Date: 20090506
  Serious: Yes (Other)
  Sender: FDA-Public Use
  Company Number: US-PURDUE-USA_2008_0036214

PATIENT
  Sex: Female

DRUGS (1)
  1. SENOKOT [Suspect]
     Indication: DRUG ABUSE

REACTIONS (1)
  - DRUG ABUSE [None]
